FAERS Safety Report 9473849 (Version 1)
Quarter: 2013Q3

REPORT INFORMATION
  Report Type: Spontaneous
  Country: US (occurrence: US)
  Receive Date: 20130823
  Receipt Date: 20130823
  Transmission Date: 20140515
  Serious: No
  Sender: FDA-Public Use
  Company Number: US-BRISTOL-MYERS SQUIBB COMPANY-17049453

PATIENT
  Age: 4 Decade
  Sex: Female

DRUGS (1)
  1. SPRYCEL [Suspect]
     Dosage: START WITH 50MG DAILY,SEP2012:INCREASED THE DOSE TO 100MG DAILY,AGAIN DECREASED TO 50MG

REACTIONS (2)
  - Thrombocytopenia [Unknown]
  - Blood urine present [Unknown]
